FAERS Safety Report 7209118-1 (Version None)
Quarter: 2010Q4

REPORT INFORMATION
  Report Type: 
  Country: None (occurrence: None)
  Receive Date: 20101222
  Receipt Date: 20101217
  Transmission Date: 20110411
  Serious: Yes (Death, Hospitalization, Other)
  Sender: FDA-Public Use
  Company Number: 2009SP006644

PATIENT
  Age: 63 Year
  Sex: Female

DRUGS (3)
  1. TEMODAL [Suspect]
     Indication: METASTATIC MALIGNANT MELANOMA
     Dosage: PO
     Route: 048
     Dates: start: 20080714, end: 20090312
  2. AVASTIN [Suspect]
     Indication: METASTATIC MALIGNANT MELANOMA
     Dosage: IV
     Route: 042
     Dates: start: 20080714, end: 20090312
  3. ASPIRIN [Concomitant]

REACTIONS (5)
  - ANAEMIA [None]
  - GINGIVAL BLEEDING [None]
  - MALIGNANT NEOPLASM PROGRESSION [None]
  - METASTATIC MALIGNANT MELANOMA [None]
  - THROMBOCYTOPENIA [None]
